FAERS Safety Report 6782918-8 (Version None)
Quarter: 2010Q2

REPORT INFORMATION
  Report Type: 
  Country: None (occurrence: None)
  Receive Date: 20100622
  Receipt Date: 20100615
  Transmission Date: 20101027
  Serious: Yes (Hospitalization)
  Sender: FDA-Public Use
  Company Number: NL-BIOGENIDEC-2010BI020300

PATIENT
  Age: 63 Year
  Sex: Female

DRUGS (2)
  1. AVONEX [Suspect]
     Indication: MULTIPLE SCLEROSIS
     Dosage: DOSE UNIT:30
     Route: 030
     Dates: start: 20010201
  2. UNSPECIFIED MEDICATION [Concomitant]
     Indication: BLOOD PRESSURE INCREASED

REACTIONS (1)
  - CHOLECYSTECTOMY [None]
